FAERS Safety Report 6264852-5 (Version None)
Quarter: 2009Q3

REPORT INFORMATION
  Report Type: 
  Country: None (occurrence: None)
  Receive Date: 20090710
  Receipt Date: 20090702
  Transmission Date: 20100115
  Serious: Yes (Other)
  Sender: FDA-Public Use
  Company Number: US-ABBOTT-09P-163-0582768-00

PATIENT
  Sex: Female
  Weight: 79.904 kg

DRUGS (6)
  1. HUMIRA [Suspect]
     Indication: CROHN'S DISEASE
     Dates: start: 20080301, end: 20090619
  2. BENICAR [Concomitant]
     Indication: HYPERTENSION
  3. XOPENEX [Concomitant]
     Indication: RESPIRATORY DISORDER
  4. NEXIUM [Concomitant]
     Indication: GASTROOESOPHAGEAL REFLUX DISEASE
  5. BUSPAR [Concomitant]
     Indication: ANXIETY
  6. XANAX [Concomitant]
     Indication: ANXIETY

REACTIONS (11)
  - ABDOMINAL PAIN [None]
  - BLOOD URINE PRESENT [None]
  - CHEST PAIN [None]
  - COUGH [None]
  - FLANK PAIN [None]
  - LUNG NEOPLASM [None]
  - NAUSEA [None]
  - PANCREATIC ENZYMES INCREASED [None]
  - PNEUMONIA VIRAL [None]
  - PYREXIA [None]
  - RESPIRATORY TRACT INFECTION [None]
